FAERS Safety Report 17158448 (Version 4)
Quarter: 2020Q2

REPORT INFORMATION
  Report Type: Spontaneous
  Country: TR (occurrence: TR)
  Receive Date: 20191216
  Receipt Date: 20200512
  Transmission Date: 20200713
  Serious: Yes (Life-Threatening, Hospitalization)
  Sender: FDA-Public Use
  Company Number: TR-BAYER-2019-224511

PATIENT
  Age: 31 Year
  Sex: Female
  Weight: 76 kg

DRUGS (6)
  1. XARELTO [Suspect]
     Active Substance: RIVAROXABAN
     Indication: PULMONARY EMBOLISM
     Dosage: UNK
     Route: 048
     Dates: start: 20200121
  2. XARELTO [Suspect]
     Active Substance: RIVAROXABAN
     Indication: PULMONARY EMBOLISM
     Dosage: UNK UNK, BID
     Route: 048
     Dates: start: 20191204, end: 20191225
  3. FOSTAIR [Concomitant]
     Active Substance: BECLOMETHASONE\FORMOTEROL
     Dosage: UNK UNK, BID
     Dates: start: 20191224
  4. LASIX [Concomitant]
     Active Substance: FUROSEMIDE
     Dosage: UNK
     Dates: start: 20191224
  5. YASMIN [Suspect]
     Active Substance: DROSPIRENONE\ETHINYL ESTRADIOL
     Indication: CONTRACEPTION
     Dosage: UNK
     Route: 048
     Dates: start: 20190526, end: 20191102
  6. SPIRIVA [Concomitant]
     Active Substance: TIOTROPIUM BROMIDE MONOHYDRATE
     Dosage: UNK UNK, QD

REACTIONS (10)
  - Pulmonary embolism [Recovered/Resolved]
  - Lung disorder [Unknown]
  - Back pain [Recovered/Resolved]
  - Nasopharyngitis [None]
  - Drug ineffective [None]
  - Musculoskeletal stiffness [Recovered/Resolved]
  - Musculoskeletal chest pain [Recovered/Resolved]
  - Pneumonia [None]
  - Fatigue [None]
  - Dyspnoea [Recovered/Resolved]

NARRATIVE: CASE EVENT DATE: 201911
